FAERS Safety Report 6066266-X (Version None)
Quarter: 2009Q1

REPORT INFORMATION
  Report Type: 
  Country: None (occurrence: None)
  Receive Date: 20090202
  Receipt Date: 20090115
  Transmission Date: 20090719
  Serious: Yes (Hospitalization)
  Sender: FDA-Public Use
  Company Number: 040050

PATIENT
  Age: 27 Year
  Sex: Female

DRUGS (4)
  1. AMPHETAMINE SALT COMBO (DEXTROAMPHETAMINE SACCHARATE, AMPHETAMINE ASPA [Suspect]
     Indication: ATTENTION DEFICIT/HYPERACTIVITY DISORDER
     Dosage: 15 MG, 20 MG, BID OR TID PRN, ORAL
     Route: 048
     Dates: start: 20080911, end: 20081106
  2. AMPHETAMINE SALT COMBO (DEXTROAMPHETAMINE SACCHARATE, AMPHETAMINE ASPA [Suspect]
     Indication: ATTENTION DEFICIT/HYPERACTIVITY DISORDER
     Dosage: 15 MG, 20 MG, BID OR TID PRN, ORAL
     Route: 048
     Dates: start: 20080919
  3. VYVANSE [Suspect]
     Dosage: 30 MG, QD, ORAL, 50 MG, QD, ORAL
     Route: 048
     Dates: start: 20081020, end: 20081027
  4. VYVANSE [Suspect]
     Dosage: 30 MG, QD, ORAL, 50 MG, QD, ORAL
     Route: 048
     Dates: start: 20081028, end: 20081107

REACTIONS (16)
  - ARTERIOVENOUS FISTULA [None]
  - CELLULITIS [None]
  - CHEST PAIN [None]
  - CHILLS [None]
  - CRYING [None]
  - ELECTROCARDIOGRAM ST SEGMENT ELEVATION [None]
  - FATIGUE [None]
  - INSOMNIA [None]
  - IRRITABILITY [None]
  - LYMPHADENITIS [None]
  - PAIN IN EXTREMITY [None]
  - PYREXIA [None]
  - SKIN INFECTION [None]
  - STRESS CARDIOMYOPATHY [None]
  - TROPONIN INCREASED [None]
  - VOMITING [None]
